FAERS Safety Report 8610015-5 (Version None)
Quarter: 2012Q3

REPORT INFORMATION
  Report Type: 
  Country: None (occurrence: None)
  Receive Date: 20120822
  Receipt Date: 20120719
  Transmission Date: 20120928
  Serious: Yes (Other)
  Sender: FDA-Public Use
  Company Number: PL-MSD-1207POL009195

PATIENT

DRUGS (1)
  1. SYCREST [Suspect]

REACTIONS (3)
  - RESPIRATORY TRACT OEDEMA [None]
  - HYPOAESTHESIA ORAL [None]
  - VOMITING [None]
